FAERS Safety Report 14605090 (Version 1)
Quarter: 2018Q1

REPORT INFORMATION
  Report Type: Spontaneous
  Country: DE (occurrence: DE)
  Receive Date: 20180306
  Receipt Date: 20180306
  Transmission Date: 20180509
  Serious: Yes (Hospitalization, Disabling, Other)
  Sender: FDA-Public Use
  Company Number: DE-BRISTOL-MYERS SQUIBB COMPANY-BMS-2018-019426

PATIENT
  Age: 97 Year
  Sex: Male

DRUGS (1)
  1. ELIQUIS [Suspect]
     Active Substance: APIXABAN
     Indication: CEREBROVASCULAR ACCIDENT PROPHYLAXIS
     Dosage: 1 DF, UNK
     Route: 065

REACTIONS (8)
  - Skin discolouration [Unknown]
  - Skin papilloma [Unknown]
  - Tooth disorder [Unknown]
  - Cerebrovascular accident [Unknown]
  - Erythema [Unknown]
  - Extremity necrosis [Unknown]
  - Peripheral arterial occlusive disease [Unknown]
  - Wound [Unknown]

NARRATIVE: CASE EVENT DATE: 2017
